FAERS Safety Report 17899518 (Version 9)
Quarter: 2021Q2

REPORT INFORMATION
  Report Type: Report from Study
  Country: PL (occurrence: PL)
  Receive Date: 20200616
  Receipt Date: 20210412
  Transmission Date: 20210717
  Serious: Yes (Death, Life-Threatening, Hospitalization)
  Sender: FDA-Public Use
  Company Number: PL-ROCHE-2574496

PATIENT
  Age: 58 Year
  Sex: Male
  Weight: 94.5 kg

DRUGS (14)
  1. TRAMADOL. [Concomitant]
     Active Substance: TRAMADOL
  2. FUROSEMIDE. [Concomitant]
     Active Substance: FUROSEMIDE
  3. ATEZOLIZUMAB. [Suspect]
     Active Substance: ATEZOLIZUMAB
     Indication: HEPATOCELLULAR CARCINOMA
     Dosage: DATE OF MOST RECENT DOSE PRIOR TO EVENT ONSET: 14/FEB/2020, 09/MAR/2020
     Route: 041
     Dates: start: 20191219, end: 20200423
  4. PRESTARIUM [Concomitant]
     Active Substance: PERINDOPRIL
  5. PANTOPRAZOL [Concomitant]
     Active Substance: PANTOPRAZOLE SODIUM
  6. SPIRONOL [Concomitant]
     Active Substance: SPIRONOLACTONE
  7. KLONOPIN [Concomitant]
     Active Substance: CLONAZEPAM
  8. XL184 [Suspect]
     Active Substance: CABOZANTINIB
     Indication: HEPATOCELLULAR CARCINOMA
     Dosage: DATE OF MOST RECENT DOSE PRIOR TO EVENT ONSET: 8/MAR/2020.
     Route: 048
     Dates: start: 20191219, end: 20200423
  9. ESPUMISAN [Concomitant]
     Active Substance: DIMETHICONE
  10. PREDNISONE. [Concomitant]
     Active Substance: PREDNISONE
  11. ROCEPHIN [Concomitant]
     Active Substance: CEFTRIAXONE SODIUM
  12. CIPROFLOXACIN HYDROCHLORIDE. [Concomitant]
     Active Substance: CIPROFLOXACIN HYDROCHLORIDE
  13. ATROPIN [Concomitant]
     Active Substance: ATROPINE
  14. GLUCOPHAGE [Concomitant]
     Active Substance: METFORMIN HYDROCHLORIDE

REACTIONS (4)
  - Hepatic failure [Recovered/Resolved]
  - Anaemia [Not Recovered/Not Resolved]
  - Hyponatraemia [Not Recovered/Not Resolved]
  - Hepatocellular carcinoma [Fatal]

NARRATIVE: CASE EVENT DATE: 20200316
